FAERS Safety Report 5279092-6 (Version None)
Quarter: 2007Q1

REPORT INFORMATION
  Report Type: 
  Country: None (occurrence: None)
  Receive Date: 20070327
  Receipt Date: 20070327
  Transmission Date: 20070707
  Serious: No
  Sender: FDA-Public Use
  Company Number: None

PATIENT
  Age: 32 Year
  Sex: Female
  Weight: 86.1834 kg

DRUGS (1)
  1. SINGULAIR [Suspect]
     Indication: MULTIPLE ALLERGIES
     Dosage: 1 TABLET  DAILY AT BEDTIME  PO  (DURATION: APPROX. FIVE OR SIX MONTHS)
     Route: 048

REACTIONS (2)
  - DEPRESSION [None]
  - IRRITABILITY [None]
